FAERS Safety Report 9394346 (Version 2)
Quarter: 2016Q1

REPORT INFORMATION
  Report Type: Spontaneous
  Country: NL (occurrence: NL)
  Receive Date: 20130711
  Receipt Date: 20160219
  Transmission Date: 20160526
  Serious: Yes (Hospitalization, Other)
  Sender: FDA-Public Use
  Company Number: NL-BRISTOL-MYERS SQUIBB COMPANY-19072818

PATIENT
  Age: 32 Year
  Sex: Male

DRUGS (2)
  1. RITONAVIR. [Interacting]
     Active Substance: RITONAVIR
     Indication: HIV INFECTION
     Dosage: 100 MG, QD
     Route: 048
  2. TRIAMCINOLONE ACETONIDE. [Suspect]
     Active Substance: TRIAMCINOLONE ACETONIDE
     Indication: PAIN
     Dosage: TRIAMCINOLONE 10MG INJ
     Route: 014

REACTIONS (4)
  - Pulmonary embolism [Recovered/Resolved]
  - Drug interaction [Unknown]
  - Hypogonadism [Recovered/Resolved]
  - Cushing^s syndrome [Recovered/Resolved]
